FAERS Safety Report 17132141 (Version 5)
Quarter: 2025Q3

REPORT INFORMATION
  Report Type: Spontaneous
  Country: EU (occurrence: EU)
  Receive Date: 20191210
  Receipt Date: 20250705
  Transmission Date: 20251020
  Serious: Yes (Life-Threatening, Hospitalization, Disabling, Other)
  Sender: AUROBINDO
  Company Number: EU-BIOGEN-2017BI00354434

PATIENT
  Age: 30 Year
  Sex: Female
  Weight: 68 kg

DRUGS (15)
  1. CEFUROXIME [Suspect]
     Active Substance: CEFUROXIME
     Indication: Encephalitis autoimmune
     Route: 042
     Dates: start: 20170322, end: 20170322
  2. PIPERACILLIN AND TAZOBACTAM [Suspect]
     Active Substance: PIPERACILLIN SODIUM\TAZOBACTAM SODIUM
     Indication: Encephalitis autoimmune
     Route: 065
     Dates: start: 20170406, end: 20170408
  3. CORTISONE [Suspect]
     Active Substance: CORTISONE
     Indication: Drug reaction with eosinophilia and systemic symptoms
     Route: 065
  4. CORTISONE [Suspect]
     Active Substance: CORTISONE
     Dosage: 2 GRAM, ONCE A DAY
     Route: 042
     Dates: start: 20170324, end: 20170329
  5. CORTISONE [Suspect]
     Active Substance: CORTISONE
     Route: 065
     Dates: start: 20170407, end: 20170407
  6. ZINBRYTA [Suspect]
     Active Substance: DACLIZUMAB
     Indication: Relapsing-remitting multiple sclerosis
     Route: 050
     Dates: start: 20161015, end: 20170112
  7. CHOLECALCIFEROL [Concomitant]
     Active Substance: CHOLECALCIFEROL
     Indication: Product used for unknown indication
     Dosage: 1000 INTERNATIONAL UNIT, ONCE A DAY
     Route: 050
  8. PANTOPRAZOLE [Concomitant]
     Active Substance: PANTOPRAZOLE
     Indication: Prophylaxis
     Dosage: 40 MILLIGRAM, ONCE A DAY
     Route: 050
     Dates: start: 20170324
  9. PANTOPRAZOLE [Concomitant]
     Active Substance: PANTOPRAZOLE
     Route: 050
  10. Calcivit d [Concomitant]
     Indication: Product used for unknown indication
     Dosage: 600 MG/400 IU
     Route: 050
  11. Urea acis [Concomitant]
     Indication: Product used for unknown indication
     Dosage: 5 PERCENT, ONCE A DAY (5CM AT 8AM AND 6PM)
     Route: 050
  12. Clobegalen [Concomitant]
     Indication: Product used for unknown indication
     Route: 050
  13. Clobegalen [Concomitant]
     Dosage: 1 DOSAGE FORM, TWO TIMES A DAY (5 CM)
     Route: 050
  14. MIRTAZAPINE [Concomitant]
     Active Substance: MIRTAZAPINE
     Indication: Adjustment disorder with depressed mood
     Route: 050
     Dates: start: 20170320
  15. CHOLECALCIFEROL [Concomitant]
     Active Substance: CHOLECALCIFEROL
     Indication: Vitamin D deficiency
     Dosage: 20000 INTERNATIONAL UNIT, EVERY WEEK
     Route: 050

REACTIONS (9)
  - Demyelination [Not Recovered/Not Resolved]
  - Drug reaction with eosinophilia and systemic symptoms [Recovered/Resolved with Sequelae]
  - Encephalitis autoimmune [Not Recovered/Not Resolved]
  - Oral candidiasis [Unknown]
  - Alanine aminotransferase increased [Recovered/Resolved]
  - Aspartate aminotransferase increased [Recovered/Resolved]
  - B-lymphocyte count increased [Recovered/Resolved]
  - Blood lactate dehydrogenase increased [Unknown]
  - Natural killer cell count decreased [Recovered/Resolved]

NARRATIVE: CASE EVENT DATE: 20170125
